FAERS Safety Report 25328752 (Version 1)
Quarter: 2025Q2

REPORT INFORMATION
  Report Type: Spontaneous
  Country: US (occurrence: US)
  Receive Date: 20250519
  Receipt Date: 20250519
  Transmission Date: 20250716
  Serious: No
  Sender: BRISTOL-MYERS SQUIBB COMPANY
  Company Number: US-BRISTOL-MYERS SQUIBB COMPANY-2025-071488

PATIENT

DRUGS (2)
  1. COBENFY [Suspect]
     Active Substance: TROSPIUM CHLORIDE\XANOMELINE
     Indication: Schizophrenia
     Dosage: DOSE: 50MGS (50MG/20MG) ON AN EMPTY STOMACH FOR 2 DAYS
     Route: 048
  2. COBENFY [Suspect]
     Active Substance: TROSPIUM CHLORIDE\XANOMELINE
     Dosage: DOSE: 100 (100MG/20MG) ON AN EMPTY STOMACH
     Route: 048

REACTIONS (3)
  - Dyspepsia [Unknown]
  - Drug intolerance [Unknown]
  - Drug titration error [Unknown]
